FAERS Safety Report 9889399 (Version 2)
Quarter: 2014Q1

REPORT INFORMATION
  Report Type: Spontaneous
  Country: UA (occurrence: UA)
  Receive Date: 20140211
  Receipt Date: 20140221
  Transmission Date: 20141002
  Serious: Yes (Hospitalization)
  Sender: FDA-Public Use
  Company Number: UA-ABBVIE-14P-269-1199973-00

PATIENT
  Age: 1 Year
  Sex: Male
  Weight: 10 kg

DRUGS (2)
  1. KLACID OS 125MG/5ML [Suspect]
     Indication: BODY TEMPERATURE INCREASED
     Dosage: 5 MILLILITER, PER ORAL SUSPENSION
     Route: 048
     Dates: start: 20140116, end: 20140121
  2. KLACID OS 125MG/5ML [Suspect]
     Indication: COUGH

REACTIONS (1)
  - Drug ineffective [Recovered/Resolved]
